FAERS Safety Report 15872001 (Version 1)
Quarter: 2019Q1

REPORT INFORMATION
  Report Type: Other
  Country: US (occurrence: US)
  Receive Date: 20190126
  Receipt Date: 20190126
  Transmission Date: 20190417
  Serious: No
  Sender: FDA-Public Use
  Company Number: US-ACORDA-ACO_147303_2018

PATIENT
  Sex: Female

DRUGS (1)
  1. AMPYRA [Suspect]
     Active Substance: DALFAMPRIDINE
     Indication: PRODUCT USED FOR UNKNOWN INDICATION
     Dosage: 10 MG, EVERY 12 HRS
     Route: 048
     Dates: start: 20120530

REACTIONS (6)
  - Coordination abnormal [Unknown]
  - Movement disorder [Unknown]
  - Feeling abnormal [Unknown]
  - Balance disorder [Unknown]
  - Slow speech [Unknown]
  - Asthenia [Unknown]
